FAERS Safety Report 20708750 (Version 2)
Quarter: 2022Q2

REPORT INFORMATION
  Report Type: Report from Study
  Country: TW (occurrence: TW)
  Receive Date: 20220414
  Receipt Date: 20220421
  Transmission Date: 20220721
  Serious: Yes (Hospitalization)
  Sender: FDA-Public Use
  Company Number: TW-EXELIXIS-CABO-22050853

PATIENT
  Age: 51 Year
  Sex: Male

DRUGS (2)
  1. CABOMETYX [Suspect]
     Active Substance: CABOZANTINIB S-MALATE
     Indication: Hepatocellular carcinoma
     Dosage: 60 MG, QD
     Route: 048
  2. IMFINZI [Concomitant]
     Active Substance: DURVALUMAB
     Indication: Hepatocellular carcinoma

REACTIONS (3)
  - Ammonia increased [Recovered/Resolved]
  - Hepatic encephalopathy [Recovered/Resolved]
  - Dizziness [Recovered/Resolved]

NARRATIVE: CASE EVENT DATE: 20220122
